FAERS Safety Report 6713612-7 (Version None)
Quarter: 2010Q2

REPORT INFORMATION
  Report Type: 
  Country: None (occurrence: None)
  Receive Date: 20100506
  Receipt Date: 20100430
  Transmission Date: 20101027
  Serious: Yes (Other)
  Sender: FDA-Public Use
  Company Number: A0846841A

PATIENT
  Sex: Female

DRUGS (2)
  1. IMITREX [Suspect]
     Indication: DRUG USE FOR UNKNOWN INDICATION
     Route: 065
  2. TYLENOL-500 [Concomitant]

REACTIONS (2)
  - GASTRIC STENOSIS [None]
  - GASTRIC ULCER [None]
